FAERS Safety Report 13664623 (Version 1)
Quarter: 2017Q2

REPORT INFORMATION
  Report Type: Spontaneous
  Country: FR (occurrence: FR)
  Receive Date: 20170619
  Receipt Date: 20170619
  Transmission Date: 20170830
  Serious: Yes (Other)
  Sender: FDA-Public Use
  Company Number: FR-GLAXOSMITHKLINE-FR2017GSK093468

PATIENT
  Age: 27 Year
  Sex: Male

DRUGS (8)
  1. BACTRIM [Suspect]
     Active Substance: SULFAMETHOXAZOLE\TRIMETHOPRIM
     Indication: BONE MARROW TRANSPLANT
     Dosage: UNK
     Route: 048
     Dates: start: 2013
  2. CORTANCYL [Suspect]
     Active Substance: PREDNISONE
     Indication: BONE MARROW TRANSPLANT
     Dosage: UNK
     Route: 048
     Dates: start: 2013
  3. JAKAVI [Suspect]
     Active Substance: RUXOLITINIB
     Indication: BONE MARROW TRANSPLANT
     Dosage: 15 MG, BID
     Route: 048
     Dates: start: 2013
  4. DELURSAN [Suspect]
     Active Substance: URSODIOL
     Indication: BONE MARROW TRANSPLANT
     Dosage: 1 DF, TID
     Route: 048
     Dates: start: 2013
  5. ZITHROMAX [Suspect]
     Active Substance: AZITHROMYCIN DIHYDRATE
     Indication: BONE MARROW TRANSPLANT
     Dosage: 2 DF, UNK
  6. VALACICLOVIR [Suspect]
     Active Substance: VALACYCLOVIR HYDROCHLORIDE
     Indication: BONE MARROW TRANSPLANT
     Dosage: 500 MG, BID
     Route: 048
     Dates: start: 2013
  7. OROCAL D3 [Suspect]
     Active Substance: CALCIUM CARBONATE\CHOLECALCIFEROL
     Indication: PRODUCT USED FOR UNKNOWN INDICATION
     Dosage: 1 DF, 1D
     Route: 048
     Dates: start: 2013
  8. INEXIUM [Suspect]
     Active Substance: ESOMEPRAZOLE
     Indication: BONE MARROW TRANSPLANT
     Dosage: 1 DF, 1D
     Route: 048
     Dates: start: 2013

REACTIONS (2)
  - Muscle spasms [Not Recovered/Not Resolved]
  - Respiratory failure [Unknown]

NARRATIVE: CASE EVENT DATE: 201505
